FAERS Safety Report 10133367 (Version 2)
Quarter: 2016Q1

REPORT INFORMATION
  Report Type: Spontaneous
  Country: FR (occurrence: FR)
  Receive Date: 20140428
  Receipt Date: 20160317
  Transmission Date: 20160525
  Serious: Yes (Hospitalization)
  Sender: FDA-Public Use
  Company Number: FR-JNJFOC-20140416951

PATIENT
  Age: 36 Year
  Sex: Male

DRUGS (3)
  1. REMICADE [Suspect]
     Active Substance: INFLIXIMAB
     Indication: CROHN^S DISEASE
     Route: 042
     Dates: start: 20140318
  2. REMICADE [Suspect]
     Active Substance: INFLIXIMAB
     Indication: CROHN^S DISEASE
     Route: 042
  3. SOLUPRED [Concomitant]
     Active Substance: PREDNISOLONE
     Route: 065

REACTIONS (6)
  - Gait disturbance [Recovered/Resolved]
  - Iron deficiency [Unknown]
  - Vitamin B12 deficiency [Unknown]
  - Drug effect decreased [Unknown]
  - Oedema peripheral [Not Recovered/Not Resolved]
  - Discomfort [Recovered/Resolved]

NARRATIVE: CASE EVENT DATE: 2014
